FAERS Safety Report 8277407-8 (Version None)
Quarter: 2012Q2

REPORT INFORMATION
  Report Type: 
  Country: None (occurrence: None)
  Receive Date: 20120412
  Receipt Date: 20120403
  Transmission Date: 20120825
  Serious: No
  Sender: FDA-Public Use
  Company Number: US-B.I. PHARMACEUTICALS,INC./RIDGEFIELD-2012-BP-06252BP

PATIENT
  Age: 81 Year
  Sex: Female

DRUGS (3)
  1. SIBISTATIN [Concomitant]
     Indication: BLOOD CHOLESTEROL INCREASED
  2. DULCOLAX [Suspect]
     Indication: FAECES HARD
     Route: 048
     Dates: start: 20120402, end: 20120403
  3. CITRACAL [Concomitant]
     Indication: CALCIUM DEFICIENCY

REACTIONS (1)
  - FAECES HARD [None]
